FAERS Safety Report 14093896 (Version 1)
Quarter: 2017Q4

REPORT INFORMATION
  Report Type: Spontaneous
  Country: AT (occurrence: AT)
  Receive Date: 20171016
  Receipt Date: 20171016
  Transmission Date: 20180321
  Serious: Yes (Hospitalization, Other)
  Sender: FDA-Public Use
  Company Number: AT-PFIZER INC-2017441858

PATIENT
  Age: 73 Year
  Sex: Female

DRUGS (3)
  1. FASLODEX [Concomitant]
     Active Substance: FULVESTRANT
     Dosage: 500 MG, UNK
  2. XGEVA [Concomitant]
     Active Substance: DENOSUMAB
     Dosage: UNK, MONTHLY
  3. IBRANCE [Suspect]
     Active Substance: PALBOCICLIB
     Indication: BREAST CANCER METASTATIC
     Dosage: 125 MG, DAILY ( CONTINUOUS INTAKE WITHOUT INTERMISSION)
     Dates: start: 20170614

REACTIONS (10)
  - Neutropenia [Unknown]
  - Pneumonia [Unknown]
  - Drug administration error [Recovered/Resolved]
  - General physical health deterioration [Unknown]
  - Pancytopenia [Unknown]
  - Urinary retention [Unknown]
  - Leukopenia [Unknown]
  - Pyrexia [Unknown]
  - Urinary tract infection [Unknown]
  - Thrombocytopenia [Unknown]

NARRATIVE: CASE EVENT DATE: 2017
